APPROVED DRUG PRODUCT: MERIDIA
Active Ingredient: SIBUTRAMINE HYDROCHLORIDE
Strength: 10MG
Dosage Form/Route: CAPSULE;ORAL
Application: N020632 | Product #002
Applicant: ABBOTT LABORATORIES PHARMACEUTICAL PRODUCTS DIV
Approved: Nov 22, 1997 | RLD: No | RS: No | Type: DISCN